FAERS Safety Report 16259579 (Version 3)
Quarter: 2019Q2

REPORT INFORMATION
  Report Type: Report from Study
  Country: FR (occurrence: FR)
  Receive Date: 20190501
  Receipt Date: 20190605
  Transmission Date: 20190711
  Serious: Yes (Life-Threatening, Hospitalization, Other)
  Sender: FDA-Public Use
  Company Number: FR-ROCHE-2308571

PATIENT
  Age: 24 Year
  Sex: Male
  Weight: 91 kg

DRUGS (4)
  1. CARBOPLATIN. [Suspect]
     Active Substance: CARBOPLATIN
     Indication: GERM CELL NEOPLASM
     Dosage: 4 AUC
     Route: 042
     Dates: start: 20190401, end: 20190404
  2. BEVACIZUMAB. [Suspect]
     Active Substance: BEVACIZUMAB
     Indication: GERM CELL NEOPLASM
     Route: 042
     Dates: start: 20190403, end: 20190403
  3. IFOSFAMIDE. [Suspect]
     Active Substance: IFOSFAMIDE
     Indication: GERM CELL NEOPLASM
     Route: 042
     Dates: start: 20190404, end: 20190408
  4. ETOPOSIDE. [Suspect]
     Active Substance: ETOPOSIDE
     Indication: GERM CELL NEOPLASM
     Route: 042
     Dates: start: 20190404, end: 20190408

REACTIONS (7)
  - Renal failure [Not Recovered/Not Resolved]
  - Renal failure [Recovered/Resolved]
  - Encephalopathy [Recovered/Resolved]
  - Coma [Unknown]
  - Hypernatraemia [Recovered/Resolved]
  - Dehydration [Not Recovered/Not Resolved]
  - Vomiting [Not Recovered/Not Resolved]

NARRATIVE: CASE EVENT DATE: 20190407
